FAERS Safety Report 20461798 (Version 1)
Quarter: 2022Q1

REPORT INFORMATION
  Report Type: Spontaneous
  Country: JP (occurrence: JP)
  Receive Date: 20220211
  Receipt Date: 20220211
  Transmission Date: 20220424
  Serious: Yes (Hospitalization, Other)
  Sender: FDA-Public Use
  Company Number: JP-MSD-2202JPN001502J

PATIENT
  Sex: Female

DRUGS (2)
  1. MOLNUPIRAVIR [Suspect]
     Active Substance: MOLNUPIRAVIR
     Indication: COVID-19 treatment
     Dosage: 800 MILLIGRAM, BID
     Route: 048
     Dates: start: 20220118, end: 20220123
  2. SOTROVIMAB [Concomitant]
     Active Substance: SOTROVIMAB
     Dosage: 500 MILLIGRAM, QD
     Route: 041
     Dates: start: 20220120, end: 20220120

REACTIONS (4)
  - Drug-induced liver injury [Unknown]
  - Oxygen saturation decreased [Unknown]
  - Hypercoagulation [Unknown]
  - Lung opacity [Unknown]

NARRATIVE: CASE EVENT DATE: 20220101
